FAERS Safety Report 16209014 (Version 1)
Quarter: 2019Q2

REPORT INFORMATION
  Report Type: Spontaneous
  Country: US (occurrence: US)
  Receive Date: 20190417
  Receipt Date: 20190417
  Transmission Date: 20190711
  Serious: Yes (Other)
  Sender: FDA-Public Use
  Company Number: US-AMREGENT-20190729

PATIENT
  Age: 39 Year
  Sex: Female

DRUGS (5)
  1. PREDNISONE. [Concomitant]
     Active Substance: PREDNISONE
     Dosage: 60 MG TAPER
     Route: 048
  2. HYDRALAZINE HCL INJECTION, USP (0901-25) [Suspect]
     Active Substance: HYDRALAZINE HYDROCHLORIDE
     Dosage: UNKNOWN
     Route: 065
  3. NO DRUG NAME [Concomitant]
     Dosage: UNKNOWN
     Route: 065
  4. HYDROXYCHLOROQUINE [Concomitant]
     Active Substance: HYDROXYCHLOROQUINE
     Dosage: UNKNOWN
     Route: 065
  5. AZATHIOPRINE. [Concomitant]
     Active Substance: AZATHIOPRINE
     Dosage: UNKNOWN
     Route: 065

REACTIONS (1)
  - Lupus-like syndrome [Unknown]
